FAERS Safety Report 9793449 (Version 1)
Quarter: 2014Q1

REPORT INFORMATION
  Report Type: Spontaneous
  Country: US (occurrence: US)
  Receive Date: 20140102
  Receipt Date: 20140102
  Transmission Date: 20141002
  Serious: No
  Sender: FDA-Public Use
  Company Number: US-AMGEN-USASP2013085037

PATIENT
  Age: 42 Year
  Sex: Male

DRUGS (2)
  1. ENBREL [Suspect]
     Indication: PSORIATIC ARTHROPATHY
     Dosage: 50 MG, QWK
     Route: 065
     Dates: start: 20131125
  2. ENBREL [Suspect]
     Indication: SARCOIDOSIS

REACTIONS (4)
  - Tenderness [Recovering/Resolving]
  - Local swelling [Recovered/Resolved]
  - Skin lesion [Recovered/Resolved]
  - Back pain [Recovered/Resolved]
